FAERS Safety Report 9303674 (Version 2)
Quarter: 2013Q2

REPORT INFORMATION
  Report Type: Spontaneous
  Country: US (occurrence: US)
  Receive Date: 20130522
  Receipt Date: 20130601
  Transmission Date: 20140414
  Serious: Yes (Hospitalization)
  Sender: FDA-Public Use
  Company Number: US-BAXTER-2013BAX018688

PATIENT
  Age: 29 Year
  Sex: Female

DRUGS (2)
  1. DIANEAL LOW CALCIUM [Suspect]
     Indication: PERITONEAL DIALYSIS
     Dosage: TOTAL FILL VOLUME OF 12.8 LITERS
     Route: 033
     Dates: start: 201103
  2. DIANEAL LOW CALCIUM [Suspect]
     Indication: PERITONEAL DIALYSIS
     Dosage: TOTAL FILL VOLUME OF 12.8 LITERS
     Route: 033
     Dates: start: 201103

REACTIONS (1)
  - Pneumonia [Recovering/Resolving]
